FAERS Safety Report 7393159-8 (Version None)
Quarter: 2011Q2

REPORT INFORMATION
  Report Type: 
  Country: None (occurrence: None)
  Receive Date: 20110404
  Receipt Date: 20110321
  Transmission Date: 20111010
  Serious: Yes (Other)
  Sender: FDA-Public Use
  Company Number: GB-MYLANLABS-2011S1005910

PATIENT
  Age: 45 Year
  Sex: Male
  Weight: 63.5 kg

DRUGS (4)
  1. LORATADINE [Concomitant]
     Indication: PRODUCT USED FOR UNKNOWN INDICATION
     Dates: start: 20110314
  2. HYDROXYZINE [Concomitant]
     Indication: PRODUCT USED FOR UNKNOWN INDICATION
     Dates: start: 20110314
  3. MIRTAZAPINE [Suspect]
     Indication: PRODUCT USED FOR UNKNOWN INDICATION
     Dates: start: 20101025
  4. LORATADINE [Concomitant]
     Dates: start: 20101025

REACTIONS (2)
  - URTICARIA [None]
  - SWELLING FACE [None]
